FAERS Safety Report 10420174 (Version 1)
Quarter: 2014Q3

REPORT INFORMATION
  Report Type: Spontaneous
  Country: US (occurrence: None)
  Receive Date: 20140714
  Receipt Date: 20140714
  Transmission Date: 20150326
  Serious: No
  Sender: FDA-Public Use
  Company Number: 1000067455

PATIENT
  Age: 50 Year
  Sex: Female

DRUGS (5)
  1. METAMUCIL (PSYLLIUM) [Concomitant]
  2. ROXICODINE (OXYCODONE HYDROCHLORIDE) [Concomitant]
  3. LINZESS [Suspect]
     Active Substance: LINACLOTIDE
     Indication: CONSTIPATION
     Route: 048
     Dates: start: 20140512
  4. MORPHINE (MORPHINE) [Concomitant]
  5. PROBIOTICS [Concomitant]
     Active Substance: PROBIOTICS NOS

REACTIONS (1)
  - Drug ineffective [None]

NARRATIVE: CASE EVENT DATE: 20140512
